FAERS Safety Report 8176065-0 (Version None)
Quarter: 2012Q1

REPORT INFORMATION
  Report Type: 
  Country: None (occurrence: None)
  Receive Date: 20120301
  Receipt Date: 20120222
  Transmission Date: 20120608
  Serious: Yes (Hospitalization)
  Sender: FDA-Public Use
  Company Number: US-CELGENEUS-163-21880-11122074

PATIENT
  Sex: Female

DRUGS (8)
  1. WARFARIN SODIUM [Concomitant]
     Dosage: 5 MILLIGRAM
     Route: 065
  2. REVLIMID [Suspect]
     Indication: MYELODYSPLASTIC SYNDROME
     Dosage: 5 MILLIGRAM
     Route: 048
     Dates: start: 20111109, end: 20111125
  3. CIPROFLOXACIN [Concomitant]
     Dosage: 200 MILLIGRAM
     Route: 041
  4. ALBUMIN (HUMAN) [Concomitant]
     Dosage: 12.5 MILLIGRAM
     Route: 065
  5. ZITHROMAX [Concomitant]
     Dosage: 250 MILLIGRAM
     Route: 065
  6. LEVAQUIN [Concomitant]
     Dosage: 250 MILLIGRAM
     Route: 065
  7. COZAAR [Concomitant]
     Dosage: 50 MILLIGRAM
     Route: 065
  8. BYSTOLIC [Concomitant]
     Dosage: 2.5 MILLIGRAM
     Route: 065

REACTIONS (6)
  - ELECTROLYTE IMBALANCE [None]
  - CARDIAC FAILURE CONGESTIVE [None]
  - DIARRHOEA [None]
  - DRUG INEFFECTIVE [None]
  - DEHYDRATION [None]
  - URINARY TRACT INFECTION [None]
